FAERS Safety Report 13809321 (Version 1)
Quarter: 2017Q3

REPORT INFORMATION
  Report Type: Spontaneous
  Country: US (occurrence: US)
  Receive Date: 20170728
  Receipt Date: 20170728
  Transmission Date: 20171127
  Serious: Yes (Hospitalization)
  Sender: FDA-Public Use
  Company Number: US-SA-2017SA136118

PATIENT
  Sex: Female
  Weight: 86.2 kg

DRUGS (22)
  1. FENOFIBRATE. [Concomitant]
     Active Substance: FENOFIBRATE
  2. VITAMIN D2 [Concomitant]
     Active Substance: ERGOCALCIFEROL
  3. HYDRALAZINE [Concomitant]
     Active Substance: HYDRALAZINE HYDROCHLORIDE
  4. CARVEDILOL. [Concomitant]
     Active Substance: CARVEDILOL
  5. PANTOPRAZOLE [Concomitant]
     Active Substance: PANTOPRAZOLE
  6. AFLIBERCEPT [Suspect]
     Active Substance: AFLIBERCEPT
     Indication: DIABETIC RETINOPATHY
     Dosage: INTRAVITREAL ROUTE
     Dates: start: 20160816
  7. TRAZODONE [Concomitant]
     Active Substance: TRAZODONE HYDROCHLORIDE
  8. ATORVASTATIN [Concomitant]
     Active Substance: ATORVASTATIN
  9. HUMALOG [Concomitant]
     Active Substance: INSULIN LISPRO
  10. PLAVIX [Suspect]
     Active Substance: CLOPIDOGREL BISULFATE
     Indication: AORTIC VALVE STENOSIS
     Route: 048
  11. IRON [Concomitant]
     Active Substance: IRON
  12. NOVOLOG [Concomitant]
     Active Substance: INSULIN ASPART
  13. ONDANSETRON [Concomitant]
     Active Substance: ONDANSETRON
  14. POTASSIUM CHLORIDE. [Concomitant]
     Active Substance: POTASSIUM CHLORIDE
  15. GABAPENTIN. [Concomitant]
     Active Substance: GABAPENTIN
  16. ALPRAZOLAM. [Concomitant]
     Active Substance: ALPRAZOLAM
  17. AFLIBERCEPT [Suspect]
     Active Substance: AFLIBERCEPT
     Indication: DIABETIC RETINOPATHY
     Dosage: INTRAVITREAL ROUTE
     Dates: start: 20161209
  18. BUMETANIDE. [Concomitant]
     Active Substance: BUMETANIDE
  19. LEVEMIR [Concomitant]
     Active Substance: INSULIN DETEMIR
  20. ISOSORBIDE MONONITRATE. [Concomitant]
     Active Substance: ISOSORBIDE MONONITRATE
  21. ASPIRIN. [Concomitant]
     Active Substance: ASPIRIN
  22. BYSTOLIC [Concomitant]
     Active Substance: NEBIVOLOL HYDROCHLORIDE

REACTIONS (1)
  - Anaemia [Recovered/Resolved]

NARRATIVE: CASE EVENT DATE: 20170129
